FAERS Safety Report 19106044 (Version 2)
Quarter: 2021Q2

REPORT INFORMATION
  Report Type: Spontaneous
  Country: US (occurrence: US)
  Receive Date: 20210407
  Receipt Date: 20210607
  Transmission Date: 20210717
  Serious: No
  Sender: FDA-Public Use
  Company Number: US-VERTEX PHARMACEUTICALS-2021-002743

PATIENT
  Sex: Female
  Weight: 63 kg

DRUGS (1)
  1. TRIKAFTA [Suspect]
     Active Substance: ELEXACAFTOR\IVACAFTOR\TEZACAFTOR
     Indication: CYSTIC FIBROSIS
     Dosage: 2 TABS (100MG ELEXA/ 50MG TEZA /IVA 75MG IVA) AM; 1 TAB (150MG IVA) PM
     Route: 048
     Dates: end: 202103

REACTIONS (2)
  - Peripheral swelling [Unknown]
  - Skin exfoliation [Unknown]
